FAERS Safety Report 9987579 (Version 1)
Quarter: 2014Q1

REPORT INFORMATION
  Report Type: Spontaneous
  Country: US (occurrence: US)
  Receive Date: 20140307
  Receipt Date: 20140307
  Transmission Date: 20141002
  Serious: No
  Sender: FDA-Public Use
  Company Number: US-009507513-1403USA001412

PATIENT
  Age: 81 Year
  Sex: Male

DRUGS (1)
  1. TEMODAR [Suspect]
     Indication: MALIGNANT MELANOMA STAGE IV
     Dosage: UNK
     Route: 048
     Dates: end: 20140217

REACTIONS (2)
  - Dyspnoea [Unknown]
  - Drug ineffective for unapproved indication [Not Recovered/Not Resolved]
